FAERS Safety Report 4366565-3 (Version None)
Quarter: 2004Q2

REPORT INFORMATION
  Report Type: 
  Country: None (occurrence: None)
  Receive Date: 20040527
  Receipt Date: 20040518
  Transmission Date: 20050107
  Serious: Yes (Life-Threatening)
  Sender: FDA-Public Use
  Company Number: FR-BRISTOL-MYERS SQUIBB COMPANY-12590477

PATIENT
  Age: 82 Year
  Sex: Female

DRUGS (6)
  1. AMIKACIN [Suspect]
     Indication: ENTEROBACTER INFECTION
     Route: 042
     Dates: start: 20040329, end: 20040331
  2. PERFALGAN IV [Suspect]
     Route: 042
     Dates: start: 20040326
  3. POLARAMINE [Suspect]
     Route: 048
     Dates: start: 20040328, end: 20040330
  4. PRIMPERAN INJ [Suspect]
     Route: 042
     Dates: start: 20040328, end: 20040328
  5. ROCEPHIN [Suspect]
     Indication: ENTEROBACTER INFECTION
     Route: 042
     Dates: start: 20040329, end: 20040331
  6. MOPRAL [Suspect]
     Route: 042
     Dates: start: 20040326

REACTIONS (1)
  - LEUKOPENIA [None]
